FAERS Safety Report 7344507-6 (Version None)
Quarter: 2011Q1

REPORT INFORMATION
  Report Type: 
  Country: None (occurrence: None)
  Receive Date: 20110310
  Receipt Date: 20110228
  Transmission Date: 20110831
  Serious: Yes (Death, Hospitalization)
  Sender: FDA-Public Use
  Company Number: DE-CELGENEUS-062-21880-11022616

PATIENT
  Age: 74 Year
  Sex: Male
  Weight: 66 kg

DRUGS (10)
  1. IBANDRONIC ACID [Concomitant]
     Dosage: 6 MILLIGRAM
     Route: 051
     Dates: start: 20110215, end: 20110215
  2. NOVAMINSULFON [Concomitant]
     Route: 048
     Dates: start: 20110204
  3. REVLIMID [Suspect]
     Indication: MULTIPLE MYELOMA
     Dosage: 25 MILLIGRAM
     Route: 048
     Dates: start: 20090408, end: 20090723
  4. REVLIMID [Suspect]
     Dosage: 10 MILLIGRAM
     Route: 048
     Dates: start: 20100326
  5. BIPHOSPHONATES [Concomitant]
     Indication: MULTIPLE MYELOMA
     Route: 065
     Dates: start: 20070101
  6. RED BLOOD CELLS [Concomitant]
     Route: 051
     Dates: start: 20110215, end: 20110215
  7. REVLIMID [Suspect]
     Dosage: 15 MILLIGRAM
     Route: 048
     Dates: start: 20090821, end: 20100319
  8. PEGFILGRASTIM [Concomitant]
     Dosage: 6 MILLIGRAM
     Route: 058
     Dates: start: 20110218, end: 20110218
  9. PALLADONE [Concomitant]
     Route: 048
     Dates: start: 20110113
  10. INNOHEP [Concomitant]
     Dosage: 20000 IU (INTERNATIONAL UNIT)
     Route: 058
     Dates: start: 20110215

REACTIONS (2)
  - ACUTE PRERENAL FAILURE [None]
  - CARDIAC FAILURE [None]
